FAERS Safety Report 14459655 (Version 1)
Quarter: 2018Q1

REPORT INFORMATION
  Report Type: Spontaneous
  Country: US (occurrence: US)
  Receive Date: 20180129
  Receipt Date: 20180129
  Transmission Date: 20180509
  Serious: Yes (Other)
  Sender: FDA-Public Use
  Company Number: None

PATIENT
  Age: 64 Year
  Sex: Male
  Weight: 74.25 kg

DRUGS (6)
  1. MITOMYCIN C [Suspect]
     Active Substance: MITOMYCIN
     Indication: BLADDER MASS
     Dosage: QUANTITY:1 INJECTION(S);OTHER FREQUENCY:ONCE INTRAVESICAL;OTHER ROUTE:INTRAVESICAL?
     Route: 043
     Dates: start: 20171208, end: 20171208
  2. VITAMIN B [Concomitant]
     Active Substance: VITAMIN B
  3. COQ10 [Concomitant]
     Active Substance: UBIDECARENONE
  4. NAC [Concomitant]
  5. VITAMIN D [Concomitant]
     Active Substance: CHOLECALCIFEROL
  6. OMEGA 3 [Concomitant]
     Active Substance: OMEGA-3 FATTY ACIDS

REACTIONS (3)
  - Bladder hypertrophy [None]
  - Urinary retention [None]
  - Testicular pain [None]

NARRATIVE: CASE EVENT DATE: 20171208
